FAERS Safety Report 25015932 (Version 1)
Quarter: 2025Q1

REPORT INFORMATION
  Report Type: Other
  Country: CA (occurrence: CA)
  Receive Date: 20250227
  Receipt Date: 20250227
  Transmission Date: 20250408
  Serious: Yes (Hospitalization, Other)
  Sender: APOTEX
  Company Number: CA-APOTEX-2025AP002426

PATIENT
  Age: 64 Year
  Sex: Female

DRUGS (1)
  1. AMBRISENTAN [Suspect]
     Active Substance: AMBRISENTAN
     Indication: Pulmonary arterial hypertension
     Dosage: 5 MILLIGRAM, QD
     Route: 048

REACTIONS (6)
  - Condition aggravated [Unknown]
  - Delirium [Unknown]
  - Dementia [Unknown]
  - Hospitalisation [Unknown]
  - Influenza [Unknown]
  - Memory impairment [Unknown]
